FAERS Safety Report 6633719-2 (Version None)
Quarter: 2010Q1

REPORT INFORMATION
  Report Type: 
  Country: None (occurrence: None)
  Receive Date: 20100315
  Receipt Date: 20100304
  Transmission Date: 20100710
  Serious: Yes (Hospitalization)
  Sender: FDA-Public Use
  Company Number: US-BIOGENIDEC-2010BI007188

PATIENT
  Age: 40 Year
  Sex: Female

DRUGS (2)
  1. TYSABRI [Suspect]
     Indication: MULTIPLE SCLEROSIS
     Route: 042
     Dates: start: 20090915, end: 20100106
  2. VALACYCLOVIR [Concomitant]
     Indication: GENITAL HERPES

REACTIONS (6)
  - DRUG SPECIFIC ANTIBODY PRESENT [None]
  - FUNGAL SKIN INFECTION [None]
  - GENITAL HERPES [None]
  - PNEUMONIA KLEBSIELLA [None]
  - URINARY TRACT INFECTION [None]
  - UROSEPSIS [None]
